FAERS Safety Report 24679549 (Version 1)
Quarter: 2024Q4

REPORT INFORMATION
  Report Type: Spontaneous
  Country: US (occurrence: US)
  Receive Date: 20241129
  Receipt Date: 20241129
  Transmission Date: 20250114
  Serious: Yes (Disabling)
  Sender: EMD SERONO INC
  Company Number: US-Merck Healthcare KGaA-2024062288

PATIENT
  Age: 54 Year
  Sex: Female

DRUGS (1)
  1. MAVENCLAD [Suspect]
     Active Substance: CLADRIBINE
     Indication: Multiple sclerosis

REACTIONS (5)
  - Blindness [Unknown]
  - Ulcer [Unknown]
  - Breast cyst [Unknown]
  - Pain [Unknown]
  - Rash [Unknown]
